FAERS Safety Report 12608081 (Version 2)
Quarter: 2016Q3

REPORT INFORMATION
  Report Type: Spontaneous
  Country: US (occurrence: US)
  Receive Date: 20160729
  Receipt Date: 20160809
  Transmission Date: 20161109
  Serious: Yes (Death, Hospitalization)
  Sender: FDA-Public Use
  Company Number: US-UNITED THERAPEUTICS-UNT-2016-011764

PATIENT
  Age: 62 Year
  Sex: Male
  Weight: 95.24 kg

DRUGS (3)
  1. ORENITRAM [Suspect]
     Active Substance: TREPROSTINIL
     Dosage: 1.25 MG, TID
     Route: 048
  2. ADEMPAS [Concomitant]
     Active Substance: RIOCIGUAT
     Indication: PRODUCT USED FOR UNKNOWN INDICATION
  3. ORENITRAM [Suspect]
     Active Substance: TREPROSTINIL
     Indication: PORTOPULMONARY HYPERTENSION
     Dosage: 1.75 MG, TID
     Route: 048
     Dates: start: 20160602

REACTIONS (3)
  - Pneumonia [Fatal]
  - Respiratory distress [Fatal]
  - Right ventricular failure [Fatal]

NARRATIVE: CASE EVENT DATE: 201607
